FAERS Safety Report 4633198-0 (Version None)
Quarter: 2005Q2

REPORT INFORMATION
  Report Type: 
  Country: None (occurrence: None)
  Receive Date: 20050408
  Receipt Date: 20050329
  Transmission Date: 20051028
  Serious: Yes (Other)
  Sender: FDA-Public Use
  Company Number: 2005042551

PATIENT
  Age: 71 Year
  Sex: Female
  Weight: 51 kg

DRUGS (14)
  1. UNASYN [Suspect]
     Indication: PNEUMONIA
     Dosage: 1.5 GRAM (3 GRAM, 1 IN 1 D), INTRAVENOUS
     Route: 042
     Dates: start: 20050225, end: 20050225
  2. CEFOTAXIME SODIUM [Suspect]
  3. NIZATIDINE [Concomitant]
  4. INSULIN ASPART (INSULIN ASPART) [Concomitant]
  5. INSULIN GLARGINE (INSULIN GLARGINE) [Concomitant]
  6. THEOPHYLLINE [Concomitant]
  7. PRANOPROFEN (PRANOPROFEN) [Concomitant]
  8. CALCIUM GLUCONATE [Concomitant]
  9. VOGLIBOSE (VOGLIBOSE) [Concomitant]
  10. GLIMEPIRIDE [Concomitant]
  11. STARLIX [Concomitant]
  12. BETAHISTINE MESILATE (BETAHISTINE MESILATE) [Concomitant]
  13. AMLODIPINE BESYLATE [Concomitant]
  14. ALL OTHER NON-THERAPEUTIC PRODUCTS (ALL OTHER NON-THERAPEUTIC PRODUCTS [Concomitant]

REACTIONS (1)
  - ANAPHYLACTIC SHOCK [None]
